FAERS Safety Report 9932038 (Version 1)
Quarter: 2014Q1

REPORT INFORMATION
  Report Type: Report from Study
  Country: US (occurrence: US)
  Receive Date: 20140228
  Receipt Date: 20140228
  Transmission Date: 20141002
  Serious: No
  Sender: FDA-Public Use
  Company Number: US-ABBVIE-13P-163-1125078-00

PATIENT
  Sex: Male

DRUGS (2)
  1. ANDROGEL [Suspect]
     Indication: BLOOD TESTOSTERONE DECREASED
     Dosage: 4 PUMPS
     Dates: end: 20130320
  2. ANDROGEL [Suspect]
     Dosage: 2 PUMPS
     Dates: start: 20130320

REACTIONS (3)
  - Feeling abnormal [Unknown]
  - Hair texture abnormal [Unknown]
  - Blood testosterone increased [Unknown]
